FAERS Safety Report 9265321 (Version 2)
Quarter: 2013Q2

REPORT INFORMATION
  Report Type: Spontaneous
  Country: JP (occurrence: JP)
  Receive Date: 20130501
  Receipt Date: 20130530
  Transmission Date: 20140414
  Serious: Yes (Hospitalization, Other)
  Sender: FDA-Public Use
  Company Number: JP-B.I. PHARMACEUTICALS,INC./RIDGEFIELD-2013-BI-10960NB

PATIENT
  Age: 42 Year
  Sex: Female

DRUGS (9)
  1. TRAZENTA [Suspect]
     Indication: DIABETES MELLITUS
     Dosage: 5 MG
     Route: 048
     Dates: start: 201302
  2. MUCOTHIO [Concomitant]
     Route: 048
  3. METHYCOBAL [Concomitant]
     Route: 048
  4. SELBEX [Concomitant]
     Route: 048
  5. FERROMIA [Concomitant]
     Route: 048
  6. LINTON [Concomitant]
     Route: 065
  7. TASMOLIN [Concomitant]
     Route: 065
  8. LEVOTOMIN [Concomitant]
     Route: 065
  9. RIVOTRIL [Concomitant]
     Route: 065

REACTIONS (4)
  - Mental disorder [Unknown]
  - Convulsion [Unknown]
  - Cold sweat [Unknown]
  - Hunger [Unknown]
